FAERS Safety Report 19940138 (Version 2)
Quarter: 2021Q4

REPORT INFORMATION
  Report Type: Report from Study
  Country: PK (occurrence: PK)
  Receive Date: 20211011
  Receipt Date: 20211102
  Transmission Date: 20220303
  Serious: Yes (Death, Other)
  Sender: FDA-Public Use
  Company Number: PK-NOVARTISPH-NVSC2021PK232112

PATIENT
  Sex: Female
  Weight: 67 kg

DRUGS (1)
  1. TASIGNA [Suspect]
     Active Substance: NILOTINIB
     Indication: Philadelphia positive chronic myeloid leukaemia
     Dosage: 600 MG (2 OF 200 MG AND 1 OF 200 MG, 2+1)
     Route: 048
     Dates: start: 20210902

REACTIONS (3)
  - Cardio-respiratory arrest [Fatal]
  - Diarrhoea [Fatal]
  - Vomiting [Fatal]
